FAERS Safety Report 17285092 (Version 1)
Quarter: 2020Q1

REPORT INFORMATION
  Report Type: Report from Study
  Country: US (occurrence: US)
  Receive Date: 20200117
  Receipt Date: 20200117
  Transmission Date: 20200409
  Serious: Yes (Other)
  Sender: FDA-Public Use
  Company Number: US-GILEAD-2020-0446375

PATIENT
  Age: 13 Year
  Sex: Male

DRUGS (4)
  1. PULMOZYME [Concomitant]
     Active Substance: DORNASE ALFA
  2. AZTREONAM LYSINE [Suspect]
     Active Substance: AZTREONAM LYSINE
     Indication: CYSTIC FIBROSIS
     Dosage: 75 MG, TID FOR 28 DAYS ON AND 28 DAYS OFF
     Route: 055
  3. TOBRAMYCIN. [Concomitant]
     Active Substance: TOBRAMYCIN
  4. SYMDEKO [Concomitant]
     Active Substance: IVACAFTOR\TEZACAFTOR

REACTIONS (3)
  - Product use issue [Not Recovered/Not Resolved]
  - Pneumonia [Not Recovered/Not Resolved]
  - Malaise [Not Recovered/Not Resolved]

NARRATIVE: CASE EVENT DATE: 20191210
